FAERS Safety Report 13131960 (Version 1)
Quarter: 2017Q1

REPORT INFORMATION
  Report Type: Spontaneous
  Country: US (occurrence: US)
  Receive Date: 20170119
  Receipt Date: 20170119
  Transmission Date: 20170428
  Serious: Yes (Disabling, Other)
  Sender: FDA-Public Use
  Company Number: PHEH2017US001680

PATIENT
  Age: 62 Year
  Weight: 77 kg

DRUGS (1)
  1. TEGRETOL [Suspect]
     Active Substance: CARBAMAZEPINE
     Indication: EPILEPSY
     Dosage: 400 MG, BID
     Route: 048

REACTIONS (3)
  - Seizure [Recovered/Resolved with Sequelae]
  - Feeling abnormal [Unknown]
  - Medication residue present [Unknown]

NARRATIVE: CASE EVENT DATE: 20170112
